FAERS Safety Report 15131388 (Version 1)
Quarter: 2018Q3

REPORT INFORMATION
  Report Type: Other
  Country: TR (occurrence: TR)
  Receive Date: 20180711
  Receipt Date: 20180711
  Transmission Date: 20181010
  Serious: Yes (Death)
  Sender: FDA-Public Use
  Company Number: TR-MEDICURE INC.-2051766

PATIENT
  Age: 71 Year
  Sex: Male

DRUGS (9)
  1. HEPARIN [Concomitant]
     Active Substance: HEPARIN SODIUM
  2. AGGRASTAT [Suspect]
     Active Substance: TIROFIBAN HYDROCHLORIDE
     Indication: ANTIPLATELET THERAPY
     Route: 040
  3. PROTAMINE SULFATE. [Concomitant]
     Active Substance: PROTAMINE SULFATE
  4. CALCIUM GLUCONATE. [Concomitant]
     Active Substance: CALCIUM GLUCONATE
  5. CLOPIDOGREL [Concomitant]
     Active Substance: CLOPIDOGREL BISULFATE
  6. ERYTHROCYTE SUSPENSION [Concomitant]
  7. FRESH FROZEN PLASMA [Concomitant]
     Active Substance: HUMAN PLASMA
  8. TRANSEXAMIC ACID [Concomitant]
     Active Substance: TRANEXAMIC ACID
  9. ASPIRIN. [Concomitant]
     Active Substance: ASPIRIN

REACTIONS (2)
  - Hypovolaemic shock [Fatal]
  - Peritoneal haemorrhage [Recovered/Resolved]
